FAERS Safety Report 5749950-4 (Version None)
Quarter: 2008Q2

REPORT INFORMATION
  Report Type: 
  Country: None (occurrence: None)
  Receive Date: 20080521
  Receipt Date: 20080521
  Transmission Date: 20081010
  Serious: Yes (Hospitalization)
  Sender: FDA-Public Use
  Company Number: None

PATIENT
  Age: 62 Year
  Sex: Female
  Weight: 84 kg

DRUGS (5)
  1. IMMUNE GLOBULIN (HUMAN) [Suspect]
     Indication: SEPTIC SHOCK
     Dosage: 30 G QD PR
     Dates: start: 20080206, end: 20080207
  2. THYMOGLOBULIN [Suspect]
     Dosage: 150 MG Q D PR
     Dates: start: 20080207, end: 20080207
  3. CELLCEPT [Concomitant]
  4. INSULIN [Concomitant]
  5. PREDNISONE TAB [Concomitant]

REACTIONS (10)
  - BLOOD GLUCOSE DECREASED [None]
  - CHEST DISCOMFORT [None]
  - CHILLS [None]
  - CULTURE URINE POSITIVE [None]
  - CULTURE WOUND POSITIVE [None]
  - HEADACHE [None]
  - PYREXIA [None]
  - SEPSIS [None]
  - TACHYCARDIA [None]
  - TACHYPNOEA [None]
